FAERS Safety Report 5237779-5 (Version None)
Quarter: 2007Q1

REPORT INFORMATION
  Report Type: 
  Country: None (occurrence: None)
  Receive Date: 20070214
  Receipt Date: 20070207
  Transmission Date: 20070707
  Serious: Yes (Other)
  Sender: FDA-Public Use
  Company Number: BE-GLAXOSMITHKLINE-B0458273A

PATIENT
  Sex: Male

DRUGS (2)
  1. LAMOTRIGINE [Suspect]
     Indication: EPILEPSY
     Dosage: 12.5MG PER DAY
     Route: 048
  2. VALPROIC ACID [Concomitant]
     Indication: EPILEPSY

REACTIONS (2)
  - AGGRESSION [None]
  - IRRITABILITY [None]
